FAERS Safety Report 17034228 (Version 2)
Quarter: 2019Q4

REPORT INFORMATION
  Report Type: Spontaneous
  Country: CN (occurrence: CN)
  Receive Date: 20191114
  Receipt Date: 20191122
  Transmission Date: 20200122
  Serious: Yes (Life-Threatening, Other)
  Sender: FDA-Public Use
  Company Number: CN-009507513-1911CHN004846

PATIENT
  Age: 57 Year
  Sex: Female
  Weight: 53.8 kg

DRUGS (3)
  1. SODIUM CHLORIDE. [Concomitant]
     Active Substance: SODIUM CHLORIDE
     Indication: ANTI-INFECTIVE THERAPY
     Dosage: 250 MILLILITER, Q8H (ALSO REPORTED AS THREE TIMES A DAY (TID))
     Route: 041
     Dates: start: 20191028, end: 20191030
  2. TIENAM [Suspect]
     Active Substance: CILASTATIN SODIUM\IMIPENEM
     Dosage: 1 GRAM, Q12H
     Route: 041
     Dates: start: 20191030
  3. TIENAM [Suspect]
     Active Substance: CILASTATIN SODIUM\IMIPENEM
     Indication: ANTI-INFECTIVE THERAPY
     Dosage: 1 GRAM, Q8H (ALSO REPORTED AS THREE TIMES A DAY (TID))
     Route: 041
     Dates: start: 20191028, end: 20191029

REACTIONS (3)
  - Nausea [Recovering/Resolving]
  - Condition aggravated [Recovering/Resolving]
  - Abdominal discomfort [Recovering/Resolving]

NARRATIVE: CASE EVENT DATE: 20191029
